FAERS Safety Report 14661610 (Version 2)
Quarter: 2020Q1

REPORT INFORMATION
  Report Type: Report from Study
  Country: US (occurrence: US)
  Receive Date: 20180320
  Receipt Date: 20200127
  Transmission Date: 20200409
  Serious: Yes (Other)
  Sender: FDA-Public Use
  Company Number: US-SA-2018SA081731

PATIENT
  Age: 61 Year
  Sex: Female

DRUGS (1)
  1. INSULIN GLARGINE [Suspect]
     Active Substance: INSULIN GLARGINE
     Dosage: 125 IU, BID

REACTIONS (10)
  - Product dose omission [Unknown]
  - Ketoacidosis [Unknown]
  - Intentional product misuse [Unknown]
  - Inappropriate schedule of product administration [Unknown]
  - Vision blurred [Unknown]
  - Glycosylated haemoglobin increased [Recovering/Resolving]
  - Dry mouth [Unknown]
  - Memory impairment [Unknown]
  - Influenza [Unknown]
  - Blood glucose increased [Unknown]
